FAERS Safety Report 21658330 (Version 1)
Quarter: 2022Q4

REPORT INFORMATION
  Report Type: Spontaneous
  Country: US (occurrence: None)
  Receive Date: 20221128
  Receipt Date: 20221128
  Transmission Date: 20230113
  Serious: Yes (Life-Threatening, Hospitalization)
  Sender: FDA-Public Use
  Company Number: None

PATIENT
  Age: 96 Year
  Sex: Female

DRUGS (1)
  1. WARFARIN [Suspect]
     Active Substance: WARFARIN

REACTIONS (6)
  - Nervous system disorder [None]
  - Headache [None]
  - Somnolence [None]
  - Confusional state [None]
  - Intracranial haematoma [None]
  - Brain oedema [None]

NARRATIVE: CASE EVENT DATE: 20220715
